FAERS Safety Report 22041364 (Version 2)
Quarter: 2023Q1

REPORT INFORMATION
  Report Type: Report from Study
  Country: ES (occurrence: ES)
  Receive Date: 20230227
  Receipt Date: 20230315
  Transmission Date: 20230417
  Serious: Yes (Hospitalization, Other)
  Sender: FDA-Public Use
  Company Number: ES-JNJFOC-20221134391

PATIENT
  Age: 44 Year
  Sex: Male
  Weight: 49.1 kg

DRUGS (2)
  1. TRABECTEDIN [Suspect]
     Active Substance: TRABECTEDIN
     Indication: Myxoid liposarcoma
     Dosage: CYCLE 1
     Route: 065
     Dates: start: 20220830
  2. TRABECTEDIN [Suspect]
     Active Substance: TRABECTEDIN
     Dosage: CYCLE 1
     Route: 065
     Dates: start: 20220927

REACTIONS (3)
  - Thrombocytopenia [Recovered/Resolved]
  - Intestinal obstruction [Recovered/Resolved]
  - Vomiting [Recovered/Resolved]

NARRATIVE: CASE EVENT DATE: 20220927
